FAERS Safety Report 9496485 (Version 1)
Quarter: 2013Q3

REPORT INFORMATION
  Report Type: Other
  Country: GB (occurrence: GB)
  Receive Date: 20130904
  Receipt Date: 20130904
  Transmission Date: 20140515
  Serious: Yes (Hospitalization, Disabling)
  Sender: FDA-Public Use
  Company Number: GB-PERRIGO-13GB008886

PATIENT
  Age: 67 Year
  Sex: Female
  Weight: 55 kg

DRUGS (1)
  1. NAPROXEN 250MG 16028/0144 [Suspect]
     Indication: PRODUCT USED FOR UNKNOWN INDICATION
     Dosage: UNK
     Route: 065
     Dates: start: 20130726

REACTIONS (5)
  - Gastric ulcer [Unknown]
  - Duodenal ulcer [Unknown]
  - Abdominal pain [Unknown]
  - Faeces discoloured [Recovered/Resolved]
  - Abdominal pain upper [Recovered/Resolved]
